FAERS Safety Report 21366446 (Version 2)
Quarter: 2022Q4

REPORT INFORMATION
  Report Type: Spontaneous
  Country: US (occurrence: US)
  Receive Date: 20220923
  Receipt Date: 20221003
  Transmission Date: 20230113
  Serious: Yes (Other)
  Sender: FDA-Public Use
  Company Number: US-SUN PHARMACEUTICAL INDUSTRIES LTD-2022R1-355439

PATIENT
  Sex: Male

DRUGS (2)
  1. DEXMETHYLPHENIDATE [Suspect]
     Active Substance: DEXMETHYLPHENIDATE
     Indication: Metabolic syndrome
     Dosage: UNK
     Route: 065
  2. GUANFACINE [Suspect]
     Active Substance: GUANFACINE
     Indication: Metabolic syndrome
     Dosage: UNK
     Route: 065

REACTIONS (1)
  - Sweat test abnormal [Unknown]
